FAERS Safety Report 9372488 (Version 2)
Quarter: 2013Q3

REPORT INFORMATION
  Report Type: Report from Study
  Country: US (occurrence: US)
  Receive Date: 20130627
  Receipt Date: 20130708
  Transmission Date: 20140515
  Serious: Yes (Death, Hospitalization)
  Sender: FDA-Public Use
  Company Number: PHEH2013US013646

PATIENT
  Age: 54 Year
  Sex: Male
  Weight: 68.93 kg

DRUGS (8)
  1. GILENYA [Suspect]
     Indication: RELAPSING-REMITTING MULTIPLE SCLEROSIS
     Dosage: 0.5 MG, QD
     Route: 048
     Dates: start: 201105
  2. ASPIRIN [Concomitant]
     Dosage: 1 DF, QD
     Route: 048
  3. AMANTADINE [Concomitant]
     Dosage: 1 DF, BID
     Route: 048
  4. MIRALAX [Concomitant]
     Dosage: 17 G, QD
     Route: 048
  5. VITAMIN B12 [Concomitant]
     Dosage: 1000 UG, QD
     Route: 048
  6. VITAMIN D3 [Concomitant]
     Dosage: 1 DF, QD
     Route: 048
  7. MULTIVITAMIN AND MINERAL [Concomitant]
  8. HI-CAL [Concomitant]

REACTIONS (19)
  - Multiple sclerosis [Fatal]
  - Dysphagia [Fatal]
  - Muscle spasticity [Fatal]
  - Dysarthria [Fatal]
  - Ophthalmoplegia [Fatal]
  - Hypertonia [Fatal]
  - Central nervous system lesion [Fatal]
  - Mobility decreased [Fatal]
  - Weight decreased [Fatal]
  - Balance disorder [Fatal]
  - Fatigue [Fatal]
  - Cognitive disorder [Fatal]
  - Muscular weakness [Fatal]
  - Intention tremor [Fatal]
  - Eye movement disorder [Fatal]
  - Depression [Unknown]
  - Affective disorder [Unknown]
  - Aspiration [Unknown]
  - Blood pressure decreased [Unknown]
